FAERS Safety Report 24036573 (Version 4)
Quarter: 2024Q4

REPORT INFORMATION
  Report Type: Other
  Country: US (occurrence: US)
  Receive Date: 20240701
  Receipt Date: 20241028
  Transmission Date: 20250115
  Serious: No
  Sender: TRAVERE THERAPEUTICS
  Company Number: US-TRAVERE-2024TVT00559

PATIENT
  Sex: Female

DRUGS (6)
  1. FILSPARI [Suspect]
     Active Substance: SPARSENTAN
     Indication: IgA nephropathy
     Dosage: ONE 200 MG TABLET ONCE DAILY ON DAYS 1 THROUGH 14
     Route: 048
     Dates: start: 20240501
  2. FILSPARI [Suspect]
     Active Substance: SPARSENTAN
     Dosage: THEN TAKE TWO 200 MG TABLETS ONCE DAILY ON DAYS 15 THROUGH 30
     Route: 048
     Dates: start: 20240515, end: 2024
  3. FERROUS SULFATE [Concomitant]
     Active Substance: FERROUS SULFATE
  4. SIMVASTATIN [Concomitant]
     Active Substance: SIMVASTATIN
  5. AMLODIPINE BESYLATE [Concomitant]
     Active Substance: AMLODIPINE BESYLATE
  6. ALLOPURINOL [Concomitant]
     Active Substance: ALLOPURINOL

REACTIONS (5)
  - Swelling [Unknown]
  - Extra dose administered [Unknown]
  - Malaise [Unknown]
  - Bone pain [Unknown]
  - Pain [Unknown]
